FAERS Safety Report 9519669 (Version 1)
Quarter: 2013Q1

REPORT INFORMATION
  Report Type: Spontaneous
  Country: US (occurrence: None)
  Receive Date: 20130305
  Receipt Date: 20130305
  Transmission Date: 20140127
  Serious: Yes (Hospitalization)
  Sender: FDA-Public Use
  Company Number: 163-21880-12010261

PATIENT
  Age: 70 Year
  Sex: Female
  Weight: 49.9 kg

DRUGS (10)
  1. REVLIMID [Suspect]
     Indication: PLASMA CELL MYELOMA
     Dosage: 5 MG, DAILY X 21 DAYS, 7 DAYS OFF, PO
     Route: 048
     Dates: start: 20110222
  2. CALCIUM PLUS VITAMIN D (CALCIUM D3 ^STADA^) (UNKNOWN) [Concomitant]
  3. FISH OIL (FISH OIL) (UNKNOWN)? [Concomitant]
  4. LEXAPRO (ESCITALOPRAM OXALATE) (UNKNOWN) [Concomitant]
  5. LORAZEPAM (LORAZEPAM) (UNKNOWN) [Concomitant]
  6. LYRICA (PREGABALIN) (UNKNOWN) [Concomitant]
  7. NEXIUM (ESOMEPRAZOLE) (UNKNOWN) [Concomitant]
  8. VALTREX (VALACICLOVIR HYDROCHLORIDE) (UNKNOWN) [Concomitant]
  9. VITAMIN B (VITAMIN B) (UNKNOWN) [Concomitant]
  10. VITAMIN C [Concomitant]

REACTIONS (1)
  - Pneumonia [None]
